FAERS Safety Report 4576147-6 (Version None)
Quarter: 2005Q1

REPORT INFORMATION
  Report Type: 
  Country: None (occurrence: None)
  Receive Date: 20050204
  Receipt Date: 20050128
  Transmission Date: 20050727
  Serious: Yes (Hospitalization, Other)
  Sender: FDA-Public Use
  Company Number: 200510026GDS

PATIENT
  Age: 60 Year
  Sex: Female
  Weight: 65 kg

DRUGS (5)
  1. CIFRAN           (CIPROFLOXACIN) [Suspect]
     Indication: PNEUMONIA
     Dosage: 1000 MG, TOTAL DAILY, ORAL
     Route: 048
     Dates: start: 20041201, end: 20041206
  2. ASPIRIN [Suspect]
     Indication: CARDIAC DISORDER
     Dosage: 100 MG, QD, ORAL
     Route: 048
     Dates: start: 20041129, end: 20041206
  3. FORMILID (CLARITHROMYCIN) [Suspect]
     Indication: PNEUMONIA
     Dosage: 1000 GM, TOTAL DAILY, ORAL
     Route: 048
     Dates: start: 20041127, end: 20041205
  4. MESULID (NIMESULIDE) [Suspect]
     Dosage: 200 MG, TOTAL DAILY, ORAL
     Route: 048
     Dates: start: 20041127, end: 20041206
  5. BETALOC ZOK (METOPROLOL) (METOPROLOL) [Suspect]
     Dosage: 50 MG, TOTAL DAILY, ORAL
     Route: 048
     Dates: start: 20041127, end: 20041206

REACTIONS (7)
  - ACUTE RESPIRATORY FAILURE [None]
  - HAEMODIALYSIS [None]
  - PNEUMONIA [None]
  - POLYURIA [None]
  - RASH GENERALISED [None]
  - RENAL FAILURE ACUTE [None]
  - RENAL TUBULAR DISORDER [None]
